FAERS Safety Report 6798228-9 (Version None)
Quarter: 2010Q2

REPORT INFORMATION
  Report Type: 
  Country: None (occurrence: None)
  Receive Date: 20100623
  Receipt Date: 20100607
  Transmission Date: 20101027
  Serious: Yes (Life-Threatening, Hospitalization, Other)
  Sender: FDA-Public Use
  Company Number: 2010-00592

PATIENT
  Age: 46 Year
  Sex: Female

DRUGS (19)
  1. SIMVASTATIN [Suspect]
     Indication: DRUG USE FOR UNKNOWN INDICATION
     Dosage: 20 MG (1 IN 1 D), ORAL; 40 MG (1 IN 1 D), ORAL
     Route: 048
  2. FUSIDIC ACID [Suspect]
     Indication: ARTHRITIS BACTERIAL
     Dosage: 500 MG
  3. FUSIDIC ACID [Suspect]
     Indication: INFECTION
     Dosage: 500 MG
  4. ASPIRIN [Concomitant]
  5. CALCIUM ACETATE 2 G (UNKNOWN) [Concomitant]
  6. CLONAZEPAM (UNKNOWN) [Concomitant]
  7. DILTIAZEM LA 200 MG (UNKNOWN) [Concomitant]
  8. ERYTHROPOIETIN BETA (UNKNOWN) [Concomitant]
  9. FOLIC ACID (UNKNOWN) [Concomitant]
  10. GENTAMICIN (UNKNOWN) [Concomitant]
  11. IRON SUCROSE 100 MG (UNKNOWN) [Concomitant]
  12. NICORANDIL 20 MG (UNKNOWN) [Concomitant]
  13. SERTRALINE [Concomitant]
  14. WARFARIN SODIUM [Concomitant]
  15. PENICILLIN V 250 MG (UNKNOWN) [Concomitant]
  16. FLUCLOXACILLIN 500 MG (UNKNOWN) [Concomitant]
  17. ALUCAPS 475 MG (UNKNOWN) [Concomitant]
  18. ALFACALCIDOL (UNKNOWN) [Concomitant]
  19. OROVITE (UNKNOWN) [Concomitant]

REACTIONS (6)
  - ARTHRITIS BACTERIAL [None]
  - DRUG INTERACTION [None]
  - HYPOTONIA [None]
  - MUSCULAR WEAKNESS [None]
  - PARAPARESIS [None]
  - RHABDOMYOLYSIS [None]
